FAERS Safety Report 5836374-4 (Version None)
Quarter: 2008Q3

REPORT INFORMATION
  Report Type: 
  Country: None (occurrence: None)
  Receive Date: 20080806
  Receipt Date: 20080806
  Transmission Date: 20090109
  Serious: No
  Sender: FDA-Public Use
  Company Number: None

PATIENT
  Age: 34 Year
  Sex: Female
  Weight: 56.6996 kg

DRUGS (1)
  1. MONTELUKAST SODIUM [Suspect]
     Indication: BRONCHIAL HYPERREACTIVITY
     Dosage: 10.4 MG -1 TABLET- 1/DAY PO
     Route: 048
     Dates: start: 20080731, end: 20080804

REACTIONS (3)
  - HYPOAESTHESIA [None]
  - PARAESTHESIA [None]
  - SKIN WARM [None]
